FAERS Safety Report 14994296 (Version 1)
Quarter: 2018Q2

REPORT INFORMATION
  Report Type: Spontaneous
  Country: US (occurrence: US)
  Receive Date: 20180521
  Receipt Date: 20180521
  Transmission Date: 20180711
  Serious: Yes (Other)
  Sender: FDA-Public Use
  Company Number: None

PATIENT
  Age: 17 Year
  Sex: Female
  Weight: 57.6 kg

DRUGS (4)
  1. FERAHEME [Suspect]
     Active Substance: FERUMOXYTOL NON-STOICHIOMETRIC MAGNETITE
     Indication: IRON DEFICIENCY
     Route: 041
     Dates: start: 20180516, end: 20180516
  2. TRANEXAMID ACID (LYSTEDA) 650 MG [Concomitant]
     Dates: start: 20180213
  3. FERROUS SULFATE 325 MG [Concomitant]
     Dates: start: 20180327
  4. ORTHO-CYCLEN, SPRINTEC 0.25-35 MG-MCG [Concomitant]
     Dates: start: 20180106

REACTIONS (1)
  - Chest discomfort [None]

NARRATIVE: CASE EVENT DATE: 20180516
